FAERS Safety Report 7168265-3 (Version None)
Quarter: 2010Q4

REPORT INFORMATION
  Report Type: 
  Country: None (occurrence: None)
  Receive Date: 20101216
  Receipt Date: 20101119
  Transmission Date: 20110411
  Serious: Yes (Death, Other)
  Sender: FDA-Public Use
  Company Number: US-BAXTER-2009BH011488

PATIENT
  Age: 80 Year
  Sex: Female
  Weight: 49 kg

DRUGS (18)
  1. HEPARIN SODIUM INJECTION [Suspect]
     Indication: CARDIAC OPERATION
     Route: 042
     Dates: start: 20080301, end: 20080101
  2. ZINC [Concomitant]
     Indication: MEDICAL DIET
     Route: 048
  3. ASPIRIN [Concomitant]
     Indication: PRODUCT USED FOR UNKNOWN INDICATION
     Route: 048
  4. LASIX [Concomitant]
     Indication: CARDIAC FAILURE CONGESTIVE
     Route: 048
  5. GABAPENTIN [Concomitant]
     Indication: NEUROPATHY PERIPHERAL
     Route: 048
  6. MEGACE [Concomitant]
     Indication: INCREASED APPETITE
     Route: 048
  7. COLACE [Concomitant]
     Indication: CONSTIPATION
     Route: 048
  8. PHENYTOIN [Concomitant]
     Indication: CONVULSION
     Route: 048
  9. SYNTHROID [Concomitant]
     Indication: HYPOTHYROIDISM
     Route: 048
  10. TOPROL-XL [Concomitant]
     Indication: PRODUCT USED FOR UNKNOWN INDICATION
     Route: 048
  11. DIGOXIN [Concomitant]
     Indication: ATRIAL FIBRILLATION
     Route: 048
  12. SINEMET [Concomitant]
     Indication: PARKINSON'S DISEASE
     Route: 048
  13. CALCIUM [Concomitant]
     Indication: MINERAL SUPPLEMENTATION
     Route: 048
  14. SERTRALINE [Concomitant]
     Indication: DEPRESSION
     Route: 048
  15. DARVOCET-N 100 [Concomitant]
     Indication: PAIN
     Route: 048
  16. XANAX [Concomitant]
     Indication: ANXIETY
     Route: 048
  17. MIRALAX [Concomitant]
     Indication: CONSTIPATION
     Route: 048
  18. ASCORBIC ACID [Concomitant]
     Indication: WOUND
     Route: 048

REACTIONS (5)
  - DIALYSIS [None]
  - PNEUMONIA [None]
  - RENAL FAILURE [None]
  - RESPIRATORY FAILURE [None]
  - SEPSIS [None]
